FAERS Safety Report 6074907-6 (Version None)
Quarter: 2009Q1

REPORT INFORMATION
  Report Type: 
  Country: None (occurrence: None)
  Receive Date: 20090212
  Receipt Date: 20090210
  Transmission Date: 20090719
  Serious: Yes (Hospitalization)
  Sender: FDA-Public Use
  Company Number: US-BRISTOL-MYERS SQUIBB COMPANY-14501704

PATIENT
  Age: 43 Year
  Sex: Male
  Weight: 93 kg

DRUGS (2)
  1. CISPLATIN [Suspect]
     Indication: PHARYNGEAL CANCER STAGE UNSPECIFIED
     Dosage: 100 MG/M2 IV ON DAY 1 AND DAY 22 OF TREATMENT.START DATE:15DEC08.
     Route: 042
     Dates: start: 20090105, end: 20090105
  2. RADIATION THERAPY [Suspect]
     Indication: PHARYNGEAL CANCER STAGE UNSPECIFIED
     Dosage: 1 DOSAGE FORM =7000CGY,NUMBER OF FRACTION:35 NUMBER OF ELAPSED DAYS:39
     Dates: start: 20090123, end: 20090123

REACTIONS (6)
  - DEHYDRATION [None]
  - GRANULOCYTE COUNT DECREASED [None]
  - OESOPHAGEAL INFECTION [None]
  - ORAL PAIN [None]
  - STOMATITIS [None]
  - WEIGHT DECREASED [None]
